FAERS Safety Report 17102176 (Version 2)
Quarter: 2020Q1

REPORT INFORMATION
  Report Type: Report from Study
  Country: GB (occurrence: GB)
  Receive Date: 20191202
  Receipt Date: 20200127
  Transmission Date: 20200409
  Serious: Yes (Hospitalization)
  Sender: FDA-Public Use
  Company Number: GB-JNJFOC-20191134466

PATIENT
  Age: 39 Year
  Sex: Female

DRUGS (11)
  1. STELARA [Suspect]
     Active Substance: USTEKINUMAB
     Route: 058
     Dates: start: 20180731
  2. PREGABALIN. [Concomitant]
     Active Substance: PREGABALIN
  3. AMLODIPINE [Concomitant]
     Active Substance: AMLODIPINE BESYLATE
  4. FOLIC ACID. [Concomitant]
     Active Substance: FOLIC ACID
  5. RAMIPRIL. [Concomitant]
     Active Substance: RAMIPRIL
  6. BETAHISTINE [Concomitant]
     Active Substance: BETAHISTINE
     Route: 065
  7. LANSOPRAZOLE. [Concomitant]
     Active Substance: LANSOPRAZOLE
  8. STELARA [Suspect]
     Active Substance: USTEKINUMAB
     Indication: CROHN^S DISEASE
     Route: 058
     Dates: start: 20180605
  9. CLOBAZAM. [Concomitant]
     Active Substance: CLOBAZAM
  10. KEPPRA [Concomitant]
     Active Substance: LEVETIRACETAM
  11. VITAMIN B12 [Concomitant]
     Active Substance: CYANOCOBALAMIN

REACTIONS (5)
  - Infusion related reaction [Recovering/Resolving]
  - Cerebral haemorrhage [Unknown]
  - Swollen tongue [Recovering/Resolving]
  - Pharyngeal swelling [Recovering/Resolving]
  - Epilepsy [Unknown]

NARRATIVE: CASE EVENT DATE: 20190825
